FAERS Safety Report 9692203 (Version 2)
Quarter: 2013Q4

REPORT INFORMATION
  Report Type: Spontaneous
  Country: GB (occurrence: GB)
  Receive Date: 20131118
  Receipt Date: 20131213
  Transmission Date: 20140711
  Serious: Yes (Other)
  Sender: FDA-Public Use
  Company Number: GB-ROCHE-1303033

PATIENT
  Age: 64 Year
  Sex: Male
  Weight: 86.4 kg

DRUGS (10)
  1. AVASTIN [Suspect]
     Indication: COLORECTAL CANCER
     Route: 042
     Dates: start: 20131002, end: 20131023
  2. CYCLIZINE [Concomitant]
     Route: 065
  3. DEXAMETHASONE [Concomitant]
     Route: 048
  4. OXYCODONE [Concomitant]
     Route: 065
  5. ISOSORBIDE MONONITRATE [Concomitant]
     Route: 048
  6. ASPIRIN [Concomitant]
     Route: 048
  7. OMEPRAZOLE [Concomitant]
     Route: 048
  8. PARACETAMOL [Concomitant]
     Route: 065
  9. GLICLAZIDE [Concomitant]
     Dosage: 80MG AM AND 40MG LUNCHTIME
     Route: 065
  10. CITALOPRAM [Concomitant]
     Route: 048

REACTIONS (1)
  - International normalised ratio increased [Recovered/Resolved]
